FAERS Safety Report 5691149-4 (Version None)
Quarter: 2008Q2

REPORT INFORMATION
  Report Type: 
  Country: None (occurrence: None)
  Receive Date: 20080402
  Receipt Date: 20080325
  Transmission Date: 20081010
  Serious: Yes (Hospitalization)
  Sender: FDA-Public Use
  Company Number: FR-RB-000611-08

PATIENT
  Sex: Male

DRUGS (3)
  1. SUBUTEX [Suspect]
     Indication: DRUG WITHDRAWAL MAINTENANCE THERAPY
     Route: 065
  2. SERESTA [Concomitant]
     Indication: DRUG USE FOR UNKNOWN INDICATION
     Dosage: DOSAGE UNKNOWN
     Route: 065
  3. RISPERDAL [Concomitant]
     Indication: DRUG USE FOR UNKNOWN INDICATION
     Dosage: DOSAGE UNKNOWN
     Route: 065

REACTIONS (4)
  - ANXIETY [None]
  - DEPRESSION [None]
  - HOSPITALISATION [None]
  - WITHDRAWAL SYNDROME [None]
